FAERS Safety Report 23873374 (Version 1)
Quarter: 2024Q2

REPORT INFORMATION
  Report Type: Spontaneous
  Country: US (occurrence: None)
  Receive Date: 20240517
  Receipt Date: 20240517
  Transmission Date: 20240715
  Serious: Yes (Hospitalization)
  Sender: FDA-Public Use
  Company Number: None

PATIENT
  Sex: Female

DRUGS (2)
  1. ELFABRIO [Suspect]
     Active Substance: PEGUNIGALSIDASE ALFA-IWXJ
     Indication: Fabry^s disease
     Dosage: 80 MG EVERY 14 DAYS INTRAVENOUSLY?
     Route: 042
     Dates: start: 202403
  2. PROLIA [Concomitant]
     Active Substance: DENOSUMAB

REACTIONS (2)
  - Hip fracture [None]
  - Cerebrovascular accident [None]
